FAERS Safety Report 7606064-6 (Version None)
Quarter: 2011Q3

REPORT INFORMATION
  Report Type: 
  Country: None (occurrence: None)
  Receive Date: 20110713
  Receipt Date: 20110705
  Transmission Date: 20111222
  Serious: Yes (Hospitalization)
  Sender: FDA-Public Use
  Company Number: US-ELI_LILLY_AND_COMPANY-US201105002531

PATIENT
  Sex: Female
  Weight: 123 kg

DRUGS (14)
  1. ASPIRIN [Concomitant]
     Dosage: 81 MG, QD
  2. POTASSIUM CHLORIDE [Concomitant]
  3. CYMBALTA [Concomitant]
     Dosage: 60 MG, QD
  4. CRESTOR [Concomitant]
     Dosage: 20 UG, EACH EVENING
  5. BYETTA [Suspect]
     Indication: TYPE 2 DIABETES MELLITUS
     Dosage: 10 UG, BID
     Route: 058
     Dates: start: 20091021, end: 20100601
  6. GLIPIZIDE [Concomitant]
     Dosage: 5 MG, QD
  7. METOPROLOL SUCCINATE [Concomitant]
     Dosage: 50 MG, QD
  8. TRAZODONE HCL [Concomitant]
     Dosage: 50 MG, UNK
  9. LASIX [Concomitant]
     Dosage: 40 MG, QD
  10. METFORMIN HCL [Concomitant]
     Dosage: 1000 MG, BID
  11. ALTACE [Concomitant]
     Dosage: 10 MG, QD
  12. NORVASC [Concomitant]
     Dosage: 5 MG, QD
  13. NEURONTIN [Concomitant]
     Dosage: 900 MG, UNK
  14. CLONIDINE [Concomitant]
     Dosage: 0.5 MG, BID

REACTIONS (2)
  - DEHYDRATION [None]
  - RENAL IMPAIRMENT [None]
